FAERS Safety Report 11414409 (Version 1)
Quarter: 2015Q3

REPORT INFORMATION
  Report Type: Spontaneous
  Country: US (occurrence: US)
  Receive Date: 20150824
  Receipt Date: 20150824
  Transmission Date: 20151125
  Serious: Yes (Hospitalization)
  Sender: FDA-Public Use
  Company Number: PHHY2015US098937

PATIENT
  Age: 67 Year
  Sex: Female

DRUGS (9)
  1. HYDROMORPHONE [Suspect]
     Active Substance: HYDROMORPHONE
     Indication: BACK PAIN
     Dosage: 9.4 MG, QD
     Route: 037
  2. HYDROMORPHONE [Suspect]
     Active Substance: HYDROMORPHONE
     Dosage: 46.1 MG, UNK
     Route: 042
  3. BUPIVACAINE [Suspect]
     Active Substance: BUPIVACAINE
     Indication: BACK PAIN
     Dosage: 1.6 MG, QD
     Route: 037
  4. HYDROMORPHONE [Suspect]
     Active Substance: HYDROMORPHONE
     Dosage: 3 MG/H, UNK
     Route: 042
  5. CLONIDINE. [Suspect]
     Active Substance: CLONIDINE
     Indication: BACK PAIN
     Dosage: 47 UG, QD
     Route: 065
  6. HYDROMORPHONE [Suspect]
     Active Substance: HYDROMORPHONE
     Dosage: 1 MG, UNK
     Route: 040
  7. HYDROMORPHONE [Suspect]
     Active Substance: HYDROMORPHONE
     Dosage: 5 MG/H, UNK
     Route: 042
  8. HYDROMORPHONE [Suspect]
     Active Substance: HYDROMORPHONE
     Dosage: 104.7 MG, UNK
     Route: 042
  9. HYDROMORPHONE [Suspect]
     Active Substance: HYDROMORPHONE
     Dosage: 12.5 MG, UNK
     Route: 042

REACTIONS (3)
  - Infection [Unknown]
  - Wound dehiscence [Unknown]
  - Mental status changes [Unknown]
